FAERS Safety Report 18814265 (Version 1)
Quarter: 2021Q1

REPORT INFORMATION
  Report Type: Spontaneous
  Country: DE (occurrence: DE)
  Receive Date: 20210201
  Receipt Date: 20210201
  Transmission Date: 20210419
  Serious: Yes (Hospitalization)
  Sender: FDA-Public Use
  Company Number: DE-TEVA-2021-DE-1873694

PATIENT
  Age: 65 Year
  Sex: Male

DRUGS (6)
  1. CLONAZEPAM. [Concomitant]
     Active Substance: CLONAZEPAM
     Dosage: 1.5 DOSAGE FORMS DAILY; 0.5 MG, 0?0?0?1.5
     Route: 048
  2. OPIPRAMOL [Concomitant]
     Active Substance: OPIPRAMOL
     Dosage: 12 GTT DAILY; 1?1?0?0, DROPS
     Route: 048
  3. FOLINSAEURE [Suspect]
     Active Substance: LEUCOVORIN
     Dosage: 12102020
     Route: 065
  4. OXALIPLATIN. [Suspect]
     Active Substance: OXALIPLATIN
     Dosage: 12102020
     Route: 065
  5. FLUOROURACIL. [Suspect]
     Active Substance: FLUOROURACIL
     Dosage: 12102020
     Route: 065
  6. PANTOPRAZOL [Concomitant]
     Active Substance: PANTOPRAZOLE SODIUM
     Dosage: 40 MILLIGRAM DAILY; 1?0?0?0
     Route: 048

REACTIONS (5)
  - Pyrexia [Unknown]
  - Nausea [Unknown]
  - Chills [Unknown]
  - Vomiting [Unknown]
  - Cold sweat [Unknown]
